FAERS Safety Report 4845060-9 (Version None)
Quarter: 2005Q4

REPORT INFORMATION
  Report Type: 
  Country: None (occurrence: None)
  Receive Date: 20051202
  Receipt Date: 20051202
  Transmission Date: 20060501
  Serious: Yes (Life-Threatening)
  Sender: FDA-Public Use
  Company Number: None

PATIENT
  Sex: Female
  Weight: 81.6475 kg

DRUGS (1)
  1. PERMAX [Suspect]
     Indication: RESTLESS LEGS SYNDROME
     Dosage: .025 TO .0375 DAILY FOR 6  YEARS
     Dates: start: 19980101, end: 20040101

REACTIONS (3)
  - MITRAL VALVE REPLACEMENT [None]
  - TRICUSPID VALVE DISEASE [None]
  - TRIPLE VESSEL BYPASS GRAFT [None]
